FAERS Safety Report 9727435 (Version 1)
Quarter: 2013Q4

REPORT INFORMATION
  Report Type: Spontaneous
  Country: US (occurrence: US)
  Receive Date: 20131203
  Receipt Date: 20131203
  Transmission Date: 20140711
  Serious: No
  Sender: FDA-Public Use
  Company Number: US-TEVA-447356USA

PATIENT
  Sex: Female

DRUGS (3)
  1. CLARAVIS [Suspect]
     Route: 048
     Dates: start: 201108
  2. CLARAVIS [Suspect]
     Route: 048
     Dates: start: 20110210
  3. CLARAVIS [Suspect]
     Route: 048
     Dates: start: 20130427

REACTIONS (1)
  - Blood triglycerides increased [Recovered/Resolved]
